FAERS Safety Report 21534987 (Version 1)
Quarter: 2022Q4

REPORT INFORMATION
  Report Type: Spontaneous
  Country: US (occurrence: None)
  Receive Date: 20221031
  Receipt Date: 20221031
  Transmission Date: 20230112
  Serious: Yes (Disabling)
  Sender: FDA-Public Use
  Company Number: None

PATIENT
  Age: 5 Year
  Sex: Male
  Weight: 27.45 kg

DRUGS (2)
  1. OSELTAMIVIR PHOSPHATE FOR ORAL SUSPENSION 6 MG/ML [Suspect]
     Active Substance: OSELTAMIVIR PHOSPHATE
     Indication: Influenza
     Dosage: OTHER QUANTITY : 10 DROP(S);?FREQUENCY : TWICE A DAY;?
     Route: 048
     Dates: start: 20221029, end: 20221031
  2. Multi Vitamin Gummies [Concomitant]

REACTIONS (2)
  - Muscle spasms [None]
  - Balance disorder [None]

NARRATIVE: CASE EVENT DATE: 20221030
